FAERS Safety Report 17251674 (Version 1)
Quarter: 2020Q1

REPORT INFORMATION
  Report Type: Spontaneous
  Country: DE (occurrence: DE)
  Receive Date: 20200109
  Receipt Date: 20200109
  Transmission Date: 20200409
  Serious: Yes (Hospitalization)
  Sender: FDA-Public Use
  Company Number: DE-TEVA-2020-DE-1164381

PATIENT
  Age: 56 Year
  Sex: Male

DRUGS (5)
  1. CANDESARTAN. [Concomitant]
     Active Substance: CANDESARTAN
     Dosage: 32 MG, 1-0-0-0 , 32 MG 1 DAYS
  2. VALPROINSAEURE [Concomitant]
     Active Substance: VALPROIC ACID
     Dosage: 600 MG, 1-0-0.5-0 , 900 MG 1 DAYS
  3. AMOXICILLIN. [Suspect]
     Active Substance: AMOXICILLIN
     Dosage: FIRST INTAKE ON 10092019
     Dates: start: 20190910
  4. ISOPTIN 40 MG [Concomitant]
     Dosage: 240 MG, 1-0-0.5-0 , 360 MG 1 DAYS
  5. FLUDICORT [Concomitant]
     Dosage: NK, MDI

REACTIONS (3)
  - Rash [Recovered/Resolved]
  - Peripheral swelling [Recovered/Resolved]
  - Product prescribing error [Recovered/Resolved]

NARRATIVE: CASE EVENT DATE: 20190910
